FAERS Safety Report 4644581-1 (Version None)
Quarter: 2005Q2

REPORT INFORMATION
  Report Type: 
  Country: None (occurrence: None)
  Receive Date: 20050425
  Receipt Date: 20050425
  Transmission Date: 20051028
  Serious: No
  Sender: FDA-Public Use
  Company Number: None

PATIENT
  Age: 67 Year
  Sex: Male

DRUGS (1)
  1. NICOTENE PATCH 21MG  (NORVARTIS) [Suspect]
     Indication: EX-SMOKER
     Dosage: 21MG TOPICAL Q24H
     Route: 061
     Dates: start: 20040308, end: 20050324

REACTIONS (2)
  - NAUSEA [None]
  - VOMITING [None]
